FAERS Safety Report 24374197 (Version 1)
Quarter: 2024Q3

REPORT INFORMATION
  Report Type: Spontaneous
  Country: US (occurrence: None)
  Receive Date: 20240927
  Receipt Date: 20240927
  Transmission Date: 20241016
  Serious: Yes (Hospitalization)
  Sender: Public
  Company Number: None

PATIENT
  Age: 19 Year
  Sex: Male
  Weight: 165.6 kg

DRUGS (1)
  1. HALDOL [Suspect]
     Active Substance: HALOPERIDOL

REACTIONS (2)
  - Disorientation [None]
  - Sexually inappropriate behaviour [None]

NARRATIVE: CASE EVENT DATE: 20010915
